FAERS Safety Report 14741518 (Version 1)
Quarter: 2018Q2

REPORT INFORMATION
  Report Type: Spontaneous
  Country: US (occurrence: US)
  Receive Date: 20180404
  Receipt Date: 20180404
  Transmission Date: 20180711
  Serious: No
  Sender: FDA-Public Use
  Company Number: None

PATIENT
  Age: 71 Year
  Sex: Female
  Weight: 65.77 kg

DRUGS (8)
  1. LISINOPRIL. [Concomitant]
     Active Substance: LISINOPRIL
  2. NIFEDIPINE. [Concomitant]
     Active Substance: NIFEDIPINE
  3. ASPIRIN. [Concomitant]
     Active Substance: ASPIRIN
  4. NEOMYCIN AND POLYMYXIN B SULFATES AND HYDROCORTISONE [Suspect]
     Active Substance: HYDROCORTISONE\NEOMYCIN SULFATE\POLYMYXIN B SULFATE
     Indication: EAR PAIN
     Dosage: ?          QUANTITY:4 GTT DROP(S);OTHER ROUTE:DROPS IN EAR?
     Dates: start: 20171220, end: 20171224
  5. VITAMIN K2 [Concomitant]
     Active Substance: MENAQUINONE 6
  6. CALCIUM [Concomitant]
     Active Substance: CALCIUM
  7. CARVEDILOL. [Concomitant]
     Active Substance: CARVEDILOL
  8. LUTEIN [Concomitant]
     Active Substance: LUTEIN

REACTIONS (3)
  - Deafness bilateral [None]
  - Product label issue [None]
  - Hypoacusis [None]

NARRATIVE: CASE EVENT DATE: 20171219
